FAERS Safety Report 13488744 (Version 1)
Quarter: 2017Q2

REPORT INFORMATION
  Report Type: Spontaneous
  Country: US (occurrence: US)
  Receive Date: 20170426
  Receipt Date: 20170426
  Transmission Date: 20170830
  Serious: No
  Sender: FDA-Public Use
  Company Number: None

PATIENT
  Sex: Female

DRUGS (1)
  1. PROCRIT [Suspect]
     Active Substance: ERYTHROPOIETIN
     Dosage: DOSE - 40,000 UNITS
     Route: 058
     Dates: start: 20170330

REACTIONS (2)
  - Lip swelling [None]
  - Hypersensitivity [None]
